FAERS Safety Report 4270745-5 (Version None)
Quarter: 2004Q1

REPORT INFORMATION
  Report Type: 
  Country: None (occurrence: None)
  Receive Date: 20040113
  Receipt Date: 20040509
  Transmission Date: 20041129
  Serious: Yes (Life-Threatening, Hospitalization)
  Sender: FDA-Public Use
  Company Number: MP04-005

PATIENT
  Sex: Female

DRUGS (1)
  1. BACTRIM [Suspect]
     Indication: SINUSITIS

REACTIONS (2)
  - HYPERSENSITIVITY [None]
  - SKIN DESQUAMATION [None]
